FAERS Safety Report 5793363-6 (Version None)
Quarter: 2008Q2

REPORT INFORMATION
  Report Type: 
  Country: None (occurrence: None)
  Receive Date: 20080627
  Receipt Date: 20080625
  Transmission Date: 20081010
  Serious: Yes (Other)
  Sender: FDA-Public Use
  Company Number: B0526524A

PATIENT
  Age: 77 Year
  Sex: Male

DRUGS (1)
  1. MODACIN [Suspect]
     Indication: INFECTION PROPHYLAXIS
     Dosage: 1MG PER DAY
     Route: 042
     Dates: start: 20080619, end: 20080619

REACTIONS (1)
  - SHOCK [None]
